FAERS Safety Report 7442204-X (Version None)
Quarter: 2011Q2

REPORT INFORMATION
  Report Type: 
  Country: None (occurrence: None)
  Receive Date: 20110428
  Receipt Date: 20110419
  Transmission Date: 20111010
  Serious: Yes (Other)
  Sender: FDA-Public Use
  Company Number: US-AMGEN-USASP2011019681

PATIENT
  Age: 61 Year
  Sex: Female

DRUGS (2)
  1. PLAQUENIL [Concomitant]
     Dosage: 1 MG, UNK
     Dates: start: 20090101
  2. ENBREL [Suspect]
     Indication: RHEUMATOID ARTHRITIS
     Dosage: 50 MG, QWK
     Dates: start: 20101206

REACTIONS (7)
  - MUSCULAR WEAKNESS [None]
  - ANXIETY [None]
  - STRESS [None]
  - FALL [None]
  - CONTUSION [None]
  - THERAPEUTIC RESPONSE DECREASED [None]
  - DEPRESSION [None]
